FAERS Safety Report 6618241-1 (Version None)
Quarter: 2010Q1

REPORT INFORMATION
  Report Type: 
  Country: None (occurrence: None)
  Receive Date: 20100308
  Receipt Date: 20100227
  Transmission Date: 20100710
  Serious: Yes (Other)
  Sender: FDA-Public Use
  Company Number: US-JNJFOC-20100301038

PATIENT
  Sex: Female

DRUGS (5)
  1. DURAGESIC-100 [Suspect]
     Indication: MUSCLE DISORDER
     Dosage: EVERY 48-72 HRS-6 DAYS A WEEK
     Route: 062
  2. DURAGESIC-100 [Suspect]
     Dosage: EVERY 48-72 HRS-1 DAYS A WEEK
     Route: 062
  3. DURAGESIC-100 [Suspect]
     Route: 062
  4. DURAGESIC-100 [Suspect]
     Dosage: EVERY 48-72 HRS-6 DAYS A WEEK
     Route: 062
  5. DURAGESIC-100 [Suspect]
     Route: 062

REACTIONS (4)
  - DRUG INEFFECTIVE [None]
  - INAPPROPRIATE SCHEDULE OF DRUG ADMINISTRATION [None]
  - PAIN [None]
  - RESPIRATORY DEPRESSION [None]
